FAERS Safety Report 9693455 (Version 2)
Quarter: 2014Q1

REPORT INFORMATION
  Report Type: Spontaneous
  Country: FR (occurrence: FR)
  Receive Date: 20131118
  Receipt Date: 20140123
  Transmission Date: 20141002
  Serious: Yes (Other)
  Sender: FDA-Public Use
  Company Number: FR-PFIZER INC-2013325123

PATIENT
  Age: 82 Year
  Sex: Male
  Weight: 81 kg

DRUGS (6)
  1. LYRICA [Suspect]
     Indication: PAIN
     Dosage: 75 MG, 2X/DAY
     Dates: start: 201306, end: 201310
  2. CRESTOR [Concomitant]
     Route: 048
  3. FUROSEMIDE BIOGARAN [Concomitant]
     Route: 048
  4. BISOPROLOL BIOGARAN [Concomitant]
     Route: 048
  5. ESOMEPRAZOLE TEVA [Concomitant]
  6. DOLIPRANE [Concomitant]

REACTIONS (7)
  - Cataract [Recovered/Resolved]
  - Blindness [Unknown]
  - Vision blurred [Unknown]
  - Mydriasis [Unknown]
  - Asthenia [Unknown]
  - Dry mouth [Unknown]
  - Nasal congestion [Unknown]
